FAERS Safety Report 16979216 (Version 1)
Quarter: 2019Q4

REPORT INFORMATION
  Report Type: Report from Study
  Country: US (occurrence: US)
  Receive Date: 20191031
  Receipt Date: 20191031
  Transmission Date: 20200122
  Serious: Yes (Life-Threatening)
  Sender: FDA-Public Use
  Company Number: US-ROCHE-2445489

PATIENT
  Age: 20 Year
  Sex: Female

DRUGS (22)
  1. LORAZEPAM. [Concomitant]
     Active Substance: LORAZEPAM
  2. PENTAMIDINE [Concomitant]
     Active Substance: PENTAMIDINE
  3. AMIKACIN. [Concomitant]
     Active Substance: AMIKACIN
  4. URSODIOL. [Concomitant]
     Active Substance: URSODIOL
  5. ATROVENT [Concomitant]
     Active Substance: IPRATROPIUM BROMIDE
  6. ETHYLMORPHINE [Concomitant]
     Active Substance: ETHYLMORPHINE
  7. POSACONAZOLE [Concomitant]
     Active Substance: POSACONAZOLE
  8. MEROPENEM. [Concomitant]
     Active Substance: MEROPENEM
  9. MYCOPHENOLATE MOFETIL. [Suspect]
     Active Substance: MYCOPHENOLATE MOFETIL
     Route: 042
     Dates: start: 20181109, end: 20181207
  10. CYCLOPHOSPHAMIDE. [Suspect]
     Active Substance: CYCLOPHOSPHAMIDE
     Indication: IMMUNOSUPPRESSION
     Route: 065
  11. PROGRAF [Suspect]
     Active Substance: TACROLIMUS
     Indication: IMMUNOSUPPRESSION
     Dosage: 1.5 - 8.5 MG
     Route: 065
     Dates: start: 20181105, end: 20181230
  12. PROGRAF [Suspect]
     Active Substance: TACROLIMUS
     Dosage: 0.5 MG TO 1 MG
     Route: 048
     Dates: start: 20190129, end: 20190409
  13. FOLATE [Concomitant]
     Active Substance: FOLATE SODIUM
  14. MORPHINE [Concomitant]
     Active Substance: MORPHINE
  15. PIPERACILLIN/TAZOBACTAM [Concomitant]
     Active Substance: PIPERACILLIN SODIUM\TAZOBACTAM SODIUM
  16. RIBAVIRIN. [Concomitant]
     Active Substance: RIBAVIRIN
     Route: 065
  17. OXYBUTYNIN. [Concomitant]
     Active Substance: OXYBUTYNIN CHLORIDE
  18. MEDROL [Concomitant]
     Active Substance: METHYLPREDNISOLONE
     Dosage: IN BETWEEN 48 MG AND 2 MG
     Route: 065
     Dates: start: 20190124, end: 20190402
  19. HALOPERIDOL. [Concomitant]
     Active Substance: HALOPERIDOL
  20. MYCOPHENOLATE MOFETIL. [Suspect]
     Active Substance: MYCOPHENOLATE MOFETIL
     Indication: STEM CELL TRANSPLANT
     Route: 048
     Dates: start: 20181105, end: 20181108
  21. PANTOPRAZOLE [Concomitant]
     Active Substance: PANTOPRAZOLE
  22. ACYCLOVIR [ACICLOVIR] [Concomitant]
     Active Substance: ACYCLOVIR

REACTIONS (1)
  - Cardiac tamponade [Unknown]

NARRATIVE: CASE EVENT DATE: 20181116
